APPROVED DRUG PRODUCT: AZELASTINE HYDROCHLORIDE
Active Ingredient: AZELASTINE HYDROCHLORIDE
Strength: 0.137MG/SPRAY
Dosage Form/Route: SPRAY, METERED;NASAL
Application: A090423 | Product #001
Applicant: SUN PHARMACEUTICAL INDUSTRIES LTD
Approved: May 23, 2012 | RLD: No | RS: No | Type: DISCN